FAERS Safety Report 21568015 (Version 1)
Quarter: 2022Q4

REPORT INFORMATION
  Report Type: Report from Study
  Country: CO (occurrence: CO)
  Receive Date: 20221108
  Receipt Date: 20221108
  Transmission Date: 20230113
  Serious: Yes (Hospitalization, Other)
  Sender: FDA-Public Use
  Company Number: CO-ALLERGAN-2225954US

PATIENT
  Sex: Female
  Weight: 15 kg

DRUGS (4)
  1. BOTULINUM TOXIN TYPE A [Suspect]
     Active Substance: BOTULINUM TOXIN TYPE A
     Indication: Muscle spasticity
     Dosage: 100 UNITS, SINGLE
     Route: 030
     Dates: start: 20220422, end: 20220422
  2. BOTULINUM TOXIN TYPE A [Suspect]
     Active Substance: BOTULINUM TOXIN TYPE A
     Indication: Muscle spasticity
  3. LEVETIRACETAM [Concomitant]
     Active Substance: LEVETIRACETAM
     Indication: Seizure
     Dosage: UNK UNK, PRN
     Route: 042
     Dates: start: 2019
  4. VALPROIC ACID [Concomitant]
     Active Substance: VALPROIC ACID
     Indication: Seizure
     Dosage: UNK UNK, PRN
     Route: 042
     Dates: start: 2019

REACTIONS (14)
  - Urinary tract infection [Recovering/Resolving]
  - Micturition disorder [Unknown]
  - Stevens-Johnson syndrome [Recovering/Resolving]
  - Sepsis [Recovering/Resolving]
  - Seizure [Recovering/Resolving]
  - Swelling [Recovering/Resolving]
  - Erythema [Recovering/Resolving]
  - Oral disorder [Recovering/Resolving]
  - Throat lesion [Recovering/Resolving]
  - Blister [Recovering/Resolving]
  - Anaemia [Recovering/Resolving]
  - Pyrexia [Recovering/Resolving]
  - Hypersensitivity [Recovering/Resolving]
  - Rash [Recovering/Resolving]

NARRATIVE: CASE EVENT DATE: 20220101
